FAERS Safety Report 24359059 (Version 1)
Quarter: 2024Q3

REPORT INFORMATION
  Report Type: Spontaneous
  Country: US (occurrence: US)
  Receive Date: 20240924
  Receipt Date: 20240924
  Transmission Date: 20241016
  Serious: Yes (Other)
  Sender: Unknown Manufacturer
  Company Number: US-BLUEPRINT MEDICINES CORPORATION-2024BUS004476

PATIENT

DRUGS (1)
  1. GAVRETO [Suspect]
     Active Substance: PRALSETINIB
     Indication: Lung neoplasm malignant
     Dosage: 400 MILLIGRAM, QD
     Route: 048
     Dates: start: 20240723

REACTIONS (3)
  - Arthralgia [Unknown]
  - Gastrointestinal disorder [Unknown]
  - Musculoskeletal pain [Unknown]

NARRATIVE: CASE EVENT DATE: 20240612
